FAERS Safety Report 9319817 (Version 1)
Quarter: 2013Q2

REPORT INFORMATION
  Report Type: Spontaneous
  Country: US (occurrence: US)
  Receive Date: 20130530
  Receipt Date: 20130530
  Transmission Date: 20140414
  Serious: Yes (Other)
  Sender: FDA-Public Use
  Company Number: US-US-EMD SERONO, INC.-7124419

PATIENT
  Sex: Female

DRUGS (1)
  1. REBIF [Suspect]
     Indication: RELAPSING-REMITTING MULTIPLE SCLEROSIS
     Route: 058
     Dates: start: 20041117

REACTIONS (15)
  - Diabetes mellitus [Recovering/Resolving]
  - Migraine [Recovered/Resolved]
  - Vitamin D decreased [Unknown]
  - Weight increased [Unknown]
  - Local swelling [Recovering/Resolving]
  - Contusion [Recovering/Resolving]
  - Blood pressure increased [Unknown]
  - Sleep apnoea syndrome [Unknown]
  - Multiple sclerosis relapse [Unknown]
  - Visual impairment [Not Recovered/Not Resolved]
  - Influenza like illness [Not Recovered/Not Resolved]
  - Injection site pain [Not Recovered/Not Resolved]
  - Injection site reaction [Not Recovered/Not Resolved]
  - Fatigue [Not Recovered/Not Resolved]
  - Depression [Unknown]
